FAERS Safety Report 15658497 (Version 1)
Quarter: 2018Q4

REPORT INFORMATION
  Report Type: Other
  Country: CA (occurrence: CA)
  Receive Date: 20181126
  Receipt Date: 20181126
  Transmission Date: 20190205
  Serious: Yes (Other)
  Sender: FDA-Public Use
  Company Number: CA-ALEXION PHARMACEUTICALS INC.-A201815386

PATIENT
  Age: 29 Year
  Sex: Male

DRUGS (5)
  1. NEISSERIA MENINGITIDIS. [Suspect]
     Active Substance: NEISSERIA MENINGITIDIS
     Dosage: 0.5 ML, SINGLE
     Route: 030
  2. SOLIRIS [Suspect]
     Active Substance: ECULIZUMAB
     Dosage: 900 MG, UNK
     Route: 042
  3. SOLIRIS [Suspect]
     Active Substance: ECULIZUMAB
     Indication: PAROXYSMAL NOCTURNAL HAEMOGLOBINURIA
     Dosage: 600 MG, QW
     Route: 042
  4. FOLIC ACID. [Concomitant]
     Active Substance: FOLIC ACID
     Indication: PRODUCT USED FOR UNKNOWN INDICATION
     Route: 065
  5. NEISSERIA MENINGITIDIS. [Suspect]
     Active Substance: NEISSERIA MENINGITIDIS
     Indication: PROPHYLAXIS
     Dosage: 0.4 ML, SINGLE
     Route: 030

REACTIONS (22)
  - Heart rate irregular [Not Recovered/Not Resolved]
  - Abdominal pain [Not Recovered/Not Resolved]
  - Dental caries [Not Recovered/Not Resolved]
  - Fatigue [Not Recovered/Not Resolved]
  - Haemolysis [Not Recovered/Not Resolved]
  - Nasopharyngitis [Not Recovered/Not Resolved]
  - Haemoglobinuria [Not Recovered/Not Resolved]
  - Injection site pain [Not Recovered/Not Resolved]
  - Asthenia [Not Recovered/Not Resolved]
  - Nasal congestion [Not Recovered/Not Resolved]
  - Arthralgia [Not Recovered/Not Resolved]
  - Rhabdomyolysis [Not Recovered/Not Resolved]
  - Headache [Not Recovered/Not Resolved]
  - Haemoglobin decreased [Not Recovered/Not Resolved]
  - Influenza like illness [Not Recovered/Not Resolved]
  - Myalgia [Not Recovered/Not Resolved]
  - Condition aggravated [Not Recovered/Not Resolved]
  - Gingival bleeding [Not Recovered/Not Resolved]
  - Injection site warmth [Not Recovered/Not Resolved]
  - Sluggishness [Not Recovered/Not Resolved]
  - Petechiae [Not Recovered/Not Resolved]
  - Vomiting [Not Recovered/Not Resolved]
